FAERS Safety Report 20146882 (Version 2)
Quarter: 2022Q1

REPORT INFORMATION
  Report Type: Spontaneous
  Country: US (occurrence: US)
  Receive Date: 20211203
  Receipt Date: 20220216
  Transmission Date: 20220423
  Serious: Yes (Hospitalization)
  Sender: FDA-Public Use
  Company Number: US-TEVA-2021-US-1982176

PATIENT
  Age: 58 Year
  Sex: Female

DRUGS (3)
  1. FREMANEZUMAB [Suspect]
     Active Substance: FREMANEZUMAB
     Dosage: FREMANEZUMAB 225 MG MONTHLY DOSE IN APRIL OF 2021
     Route: 065
     Dates: start: 202104
  2. FREMANEZUMAB [Suspect]
     Active Substance: FREMANEZUMAB
  3. ASPIRIN [Concomitant]
     Active Substance: ASPIRIN
     Indication: Hypertension

REACTIONS (2)
  - Pulmonary embolism [Unknown]
  - Deep vein thrombosis [Unknown]

NARRATIVE: CASE EVENT DATE: 20210101
